FAERS Safety Report 5031853-4 (Version None)
Quarter: 2006Q2

REPORT INFORMATION
  Report Type: 
  Country: None (occurrence: None)
  Receive Date: 20060616
  Receipt Date: 20060531
  Transmission Date: 20061013
  Serious: Yes (Hospitalization)
  Sender: FDA-Public Use
  Company Number: DSA_28271_2006

PATIENT
  Age: 43 Year
  Sex: Male

DRUGS (3)
  1. TAVOR /00273201/ [Suspect]
     Dosage: 10 MG ONCE PO
     Route: 048
     Dates: start: 20060531, end: 20060531
  2. METOPROLOL TARTRATE [Suspect]
     Dosage: 10 G ONCE PO
     Route: 048
     Dates: start: 20060531, end: 20060531
  3. TILIDINE [Suspect]
     Dosage: 50 ML ONCE PO
     Route: 048
     Dates: start: 20060531, end: 20060531

REACTIONS (4)
  - BRADYCARDIA [None]
  - COMA [None]
  - HYPOTENSION [None]
  - OVERDOSE [None]
